FAERS Safety Report 4682888-2 (Version None)
Quarter: 2005Q2

REPORT INFORMATION
  Report Type: 
  Country: None (occurrence: None)
  Receive Date: 20050602
  Receipt Date: 20050126
  Transmission Date: 20051028
  Serious: No
  Sender: FDA-Public Use
  Company Number: US_0502112105

PATIENT
  Sex: Female

DRUGS (4)
  1. CYMBALTA [Suspect]
     Dosage: 90 MG DAY
  2. TRAMADOL HCL [Concomitant]
  3. TRAZODONE [Concomitant]
  4. PROVIGIL [Concomitant]

REACTIONS (2)
  - PRESCRIBED OVERDOSE [None]
  - TREMOR [None]
